FAERS Safety Report 5471366-9 (Version None)
Quarter: 2007Q3

REPORT INFORMATION
  Report Type: 
  Country: None (occurrence: None)
  Receive Date: 20070928
  Receipt Date: 20061103
  Transmission Date: 20080115
  Serious: No
  Sender: FDA-Public Use
  Company Number: US-BRISTOL-MYERS SQUIBB COMPANY-13503313

PATIENT
  Age: 52 Year
  Sex: Male

DRUGS (6)
  1. DEFINITY [Suspect]
     Indication: STRESS ECHOCARDIOGRAM
     Dosage: DEFINITY SUSP=1.3 CC MIXED IN 8.7CC NORMAL SALINE  1.0-2.0X2=1ST BOLUS   1.0CC=2ND BOLUS
     Route: 040
     Dates: start: 20060609, end: 20060609
  2. PRILOSEC [Concomitant]
  3. DIOVAN [Concomitant]
  4. ASPIRIN [Concomitant]
  5. ADVIL LIQUI-GELS [Concomitant]
  6. CENTRUM [Concomitant]

REACTIONS (4)
  - BLOOD PRESSURE DECREASED [None]
  - FLUSHING [None]
  - PRURITUS [None]
  - URTICARIA [None]
